FAERS Safety Report 24112094 (Version 2)
Quarter: 2024Q3

REPORT INFORMATION
  Report Type: Spontaneous
  Country: DE (occurrence: DE)
  Receive Date: 20240719
  Receipt Date: 20240722
  Transmission Date: 20241017
  Serious: Yes (Hospitalization, Congenital Anomaly, Other)
  Sender: VERITY PHARMACEUTICALS
  Company Number: DE-VER-202400005

PATIENT
  Sex: Female

DRUGS (3)
  1. TRIPTORELIN [Suspect]
     Active Substance: TRIPTORELIN
     Indication: Assisted fertilisation
     Dosage: POWDER AND SOLVENT FOR SUSPENSION FOR INJECTION
     Route: 064
  2. METFORMIN [Suspect]
     Active Substance: METFORMIN HYDROCHLORIDE
     Indication: Insulin resistance
     Dosage: 1250 MILLIGRAM(S) (1250 MILLIGRAM(S), 1 IN 1 DAY)
     Route: 064
     Dates: start: 20220916, end: 20221230
  3. PERTUSSIS VACCINE [Concomitant]
     Active Substance: PERTUSSIS VACCINE
     Indication: Prophylaxis
     Route: 065

REACTIONS (2)
  - Foetal exposure during pregnancy [Unknown]
  - Oesophageal atresia [Recovered/Resolved]

NARRATIVE: CASE EVENT DATE: 20230601
